FAERS Safety Report 6935685-9 (Version None)
Quarter: 2010Q3

REPORT INFORMATION
  Report Type: 
  Country: None (occurrence: None)
  Receive Date: 20100823
  Receipt Date: 20100813
  Transmission Date: 20110219
  Serious: Yes (Other)
  Sender: FDA-Public Use
  Company Number: US-JNJFOC-20100805998

PATIENT
  Sex: Male
  Weight: 41.73 kg

DRUGS (5)
  1. RISPERDAL [Suspect]
     Indication: BIPOLAR I DISORDER
     Route: 048
  2. RISPERDAL [Suspect]
     Indication: PSYCHOTIC DISORDER
     Route: 048
  3. DEPAKOTE [Concomitant]
     Indication: BIPOLAR I DISORDER
     Route: 048
  4. OMEPRAZOLE [Concomitant]
     Indication: GASTROOESOPHAGEAL REFLUX DISEASE
     Route: 048
  5. UNKNOWN MEDICATION [Concomitant]
     Indication: BIPOLAR I DISORDER
     Route: 048

REACTIONS (12)
  - ABNORMAL LOSS OF WEIGHT [None]
  - BRADYPHRENIA [None]
  - CHOKING [None]
  - DYSPHAGIA [None]
  - FEELING ABNORMAL [None]
  - GASTROINTESTINAL HYPOMOTILITY [None]
  - HYPOTONIA [None]
  - MUSCLE CONTRACTIONS INVOLUNTARY [None]
  - MUSCLE DISORDER [None]
  - PERONEAL NERVE PALSY [None]
  - THINKING ABNORMAL [None]
  - VISION BLURRED [None]
